FAERS Safety Report 17299561 (Version 3)
Quarter: 2020Q1

REPORT INFORMATION
  Report Type: Report from Study
  Country: None (occurrence: CN)
  Receive Date: 20200121
  Receipt Date: 20200303
  Transmission Date: 20200409
  Serious: Yes (Hospitalization)
  Sender: FDA-Public Use
  Company Number: CN-ABBVIE-20P-035-3230426-00

PATIENT
  Age: 74 Year
  Sex: Male
  Weight: 90 kg

DRUGS (25)
  1. POVIDONE IODINE SOLUTION 5% [Concomitant]
     Indication: INFECTION PROPHYLAXIS
     Dosage: DOSE: 1 APPLICATION
     Route: 061
     Dates: start: 20180710
  2. COMPOUND HUANGQINLONG TEA PLUG (TRADITIONAL CHINESE MEDICINE) [Concomitant]
     Indication: PHYTOTHERAPY
  3. MOXIFLOXACIN. [Concomitant]
     Active Substance: MOXIFLOXACIN
     Route: 048
     Dates: start: 20191030
  4. AZACITIDINE. [Suspect]
     Active Substance: AZACITIDINE
     Indication: ACUTE MYELOID LEUKAEMIA
     Dosage: DAYS 1-7 OF EACH 28 DAY CYCLE
     Route: 058
     Dates: start: 20180730, end: 20191231
  5. MUPIROCIN OINTMENT 2% [Concomitant]
     Active Substance: MUPIROCIN
     Indication: INFECTION PROPHYLAXIS
     Route: 003
     Dates: start: 20180907
  6. COMPOUND HUANGQINLONG TEA PLUG (TRADITIONAL CHINESE MEDICINE) [Concomitant]
     Indication: INFECTION PROPHYLAXIS
     Route: 054
     Dates: start: 20180710
  7. SODIUM HYALURONATE [Concomitant]
     Active Substance: HYALURONATE SODIUM
     Indication: DRY EYE
     Route: 047
     Dates: start: 20190312
  8. FLUOROMETHOLONE. [Concomitant]
     Active Substance: FLUOROMETHOLONE
     Indication: CONJUNCTIVOCHALASIS
  9. CHLORHEXIDINIDAZOLE GARGLE [Concomitant]
     Indication: INFECTION PROPHYLAXIS
     Route: 002
     Dates: start: 20180908
  10. TEICOPLANIN [Concomitant]
     Active Substance: TEICOPLANIN
     Indication: PNEUMONIA
     Route: 041
     Dates: start: 20190728
  11. NORMAL SALINE SOLUTION [Concomitant]
     Route: 042
     Dates: start: 20180803, end: 20180803
  12. VENETOCLAX. [Suspect]
     Active Substance: VENETOCLAX
     Indication: ACUTE MYELOID LEUKAEMIA
     Route: 048
     Dates: start: 20180730, end: 20180730
  13. VENETOCLAX. [Suspect]
     Active Substance: VENETOCLAX
     Route: 048
     Dates: start: 20180801, end: 20200114
  14. 5% SODIUM BICARBONATE [Concomitant]
     Indication: PROPHYLAXIS
  15. IODINE GLYCEROL [Concomitant]
     Indication: INFECTION PROPHYLAXIS
     Dosage: DOSE: 1 APPLICATION
     Route: 061
     Dates: start: 20180710
  16. INSULIN GLARGINE INJECTION [Concomitant]
     Indication: DIABETES MELLITUS
     Dosage: FREQUENCY: QN
     Route: 058
     Dates: start: 20190410
  17. FLUOROMETHOLONE. [Concomitant]
     Active Substance: FLUOROMETHOLONE
     Indication: CATARACT
  18. INSULIN [Concomitant]
     Active Substance: INSULIN NOS
     Indication: DIABETES MELLITUS
     Dates: start: 201907
  19. FEBUXOSTAT. [Concomitant]
     Active Substance: FEBUXOSTAT
     Indication: PROPHYLAXIS
     Route: 048
     Dates: start: 20180729, end: 20180812
  20. COMPOUND DYCLONINE AND COMPOUND DYCLONINE OINTMENT [Concomitant]
     Indication: INFECTION PROPHYLAXIS
     Route: 061
     Dates: start: 20180710
  21. VENETOCLAX. [Suspect]
     Active Substance: VENETOCLAX
     Route: 048
     Dates: start: 20180731, end: 20180731
  22. NORMAL SALINE SOLUTION [Concomitant]
     Indication: PROPHYLAXIS
     Route: 042
     Dates: start: 20180729, end: 20180802
  23. MOXIFLOXACIN. [Concomitant]
     Active Substance: MOXIFLOXACIN
     Indication: PNEUMONIA
     Route: 048
     Dates: start: 20190409, end: 20190418
  24. FLUOROMETHOLONE. [Concomitant]
     Active Substance: FLUOROMETHOLONE
     Indication: OCULAR DISCOMFORT
     Route: 047
     Dates: start: 20190523
  25. ACARBOSE. [Concomitant]
     Active Substance: ACARBOSE
     Indication: DIABETES MELLITUS
     Dates: start: 201907

REACTIONS (2)
  - Thrombocytopenia [Recovered/Resolved]
  - Neutropenia [Recovered/Resolved]

NARRATIVE: CASE EVENT DATE: 20200111
